FAERS Safety Report 5930776-3 (Version None)
Quarter: 2008Q4

REPORT INFORMATION
  Report Type: 
  Country: None (occurrence: None)
  Receive Date: 20081022
  Receipt Date: 20081006
  Transmission Date: 20090506
  Serious: Yes (Hospitalization)
  Sender: FDA-Public Use
  Company Number: 8037405

PATIENT
  Age: 80 Year
  Sex: Female

DRUGS (2)
  1. KEPPRA [Suspect]
     Indication: STATUS EPILEPTICUS
     Dosage: 500 MG 2/D PO
     Route: 048
  2. TEMESTA /00273201/ [Suspect]
     Indication: SOMNOLENCE
     Dosage: PO
     Route: 048

REACTIONS (1)
  - DISTURBANCE IN ATTENTION [None]
